FAERS Safety Report 4615758-6 (Version None)
Quarter: 2005Q1

REPORT INFORMATION
  Report Type: 
  Country: None (occurrence: None)
  Receive Date: 20050317
  Receipt Date: 20050308
  Transmission Date: 20050727
  Serious: Yes (Life-Threatening, Hospitalization)
  Sender: FDA-Public Use
  Company Number: 2005-03-0585

PATIENT
  Age: 10 Year
  Sex: Male

DRUGS (5)
  1. ALBUTEROL [Suspect]
     Indication: COUGH
     Dosage: 2.5 MG INHALATION; ONCE
     Route: 055
  2. CEFTRIAXONE [Suspect]
     Indication: RESPIRATORY DISTRESS
     Dosage: INTRAVENOUS
     Route: 042
  3. VANCOMYCIN [Suspect]
     Indication: RESPIRATORY DISTRESS
     Dosage: INTRAVENOUS
     Route: 042
  4. CEFTIN [Suspect]
     Indication: RESPIRATORY DISTRESS
     Dosage: ORAL
     Route: 048
  5. AZITHROMYCIN [Suspect]
     Dosage: ORAL
     Route: 048

REACTIONS (10)
  - CARDIOGENIC SHOCK [None]
  - COMA [None]
  - CONDITION AGGRAVATED [None]
  - COUGH [None]
  - GENERAL PHYSICAL HEALTH DETERIORATION [None]
  - HAEMOLYTIC ANAEMIA [None]
  - MYOCARDIAL ISCHAEMIA [None]
  - PALLOR [None]
  - RESPIRATORY DISTRESS [None]
  - SINUS TACHYCARDIA [None]
